FAERS Safety Report 14476960 (Version 1)
Quarter: 2018Q1

REPORT INFORMATION
  Report Type: Report from Study
  Country: US (occurrence: US)
  Receive Date: 20180201
  Receipt Date: 20180201
  Transmission Date: 20180509
  Serious: No
  Sender: FDA-Public Use
  Company Number: US-EXELIXIS-CABO-17009525

PATIENT
  Sex: Male

DRUGS (6)
  1. HYDROMORPHONE [Concomitant]
     Active Substance: HYDROMORPHONE
  2. CABOMETYX [Suspect]
     Active Substance: CABOZANTINIB S-MALATE
     Indication: RENAL CANCER
     Dosage: 60 MG, QD
     Route: 048
     Dates: start: 20170519
  3. OXYCODONE [Concomitant]
     Active Substance: OXYCODONE
  4. VALIUM [Concomitant]
     Active Substance: DIAZEPAM
  5. MORPHINE [Concomitant]
     Active Substance: MORPHINE
  6. MARINOL [Concomitant]
     Active Substance: DRONABINOL

REACTIONS (4)
  - Dysphonia [Unknown]
  - Swelling face [Unknown]
  - Toothache [Unknown]
  - Rash macular [Unknown]
